FAERS Safety Report 5537690-6 (Version None)
Quarter: 2007Q4

REPORT INFORMATION
  Report Type: 
  Country: None (occurrence: None)
  Receive Date: 20071207
  Receipt Date: 20071204
  Transmission Date: 20080405
  Serious: Yes (Hospitalization)
  Sender: FDA-Public Use
  Company Number: US-ASTRAZENECA-2007UW27610

PATIENT
  Age: 29 Year
  Sex: Female
  Weight: 120.5 kg

DRUGS (3)
  1. SEROQUEL [Suspect]
     Route: 048
  2. HYDROCODONE BITARTRATE [Suspect]
  3. REBIF [Suspect]
     Indication: MULTIPLE SCLEROSIS
     Route: 058
     Dates: start: 20060128, end: 20060801

REACTIONS (2)
  - OVERDOSE [None]
  - SUICIDE ATTEMPT [None]
